FAERS Safety Report 9681532 (Version 3)
Quarter: 2014Q1

REPORT INFORMATION
  Report Type: Spontaneous
  Country: US (occurrence: US)
  Receive Date: 20131111
  Receipt Date: 20140108
  Transmission Date: 20141002
  Serious: Yes (Other)
  Sender: FDA-Public Use
  Company Number: US-GLAXOSMITHKLINE-A1048460A

PATIENT
  Age: 80 Year
  Sex: Female
  Weight: 40.4 kg

DRUGS (3)
  1. ARZERRA [Suspect]
     Indication: CHRONIC LYMPHOCYTIC LEUKAEMIA
     Route: 065
     Dates: start: 20130925, end: 20130930
  2. LEVOXYL [Concomitant]
  3. PREDNISONE [Concomitant]

REACTIONS (3)
  - Oxygen supplementation [Not Recovered/Not Resolved]
  - Respiratory therapy [Not Recovered/Not Resolved]
  - Dyspnoea [Not Recovered/Not Resolved]
